FAERS Safety Report 21405877 (Version 3)
Quarter: 2022Q4

REPORT INFORMATION
  Report Type: Spontaneous
  Country: US (occurrence: US)
  Receive Date: 20221004
  Receipt Date: 20221101
  Transmission Date: 20230113
  Serious: No
  Sender: FDA-Public Use
  Company Number: US-HETERO-HET2022US02454

PATIENT
  Sex: Male
  Weight: 144 kg

DRUGS (2)
  1. LEVETIRACETAM [Suspect]
     Active Substance: LEVETIRACETAM
     Indication: Epilepsy
     Dosage: 1000 MG, TWICE A DAY (BOTTLE OF 60 TABLETS)
     Route: 048
  2. LEVETIRACETAM [Suspect]
     Active Substance: LEVETIRACETAM
     Dosage: 1000 MG, ONCE A DAY (BOTTLE OF 60 TABLETS)
     Route: 048

REACTIONS (1)
  - Epistaxis [Recovered/Resolved]
